FAERS Safety Report 13357686 (Version 1)
Quarter: 2017Q1

REPORT INFORMATION
  Report Type: Spontaneous
  Country: DK (occurrence: DK)
  Receive Date: 20170322
  Receipt Date: 20170322
  Transmission Date: 20170429
  Serious: Yes (Other)
  Sender: FDA-Public Use
  Company Number: DK-SUN PHARMACEUTICAL INDUSTRIES LTD-2017R1-136333

PATIENT
  Age: 65 Year
  Sex: Male

DRUGS (6)
  1. NORTRIPTYLINE [Suspect]
     Active Substance: NORTRIPTYLINE
     Indication: DEPRESSION
     Dosage: UNK
     Route: 065
  2. REBOXETINE [Suspect]
     Active Substance: REBOXETINE
     Indication: DEPRESSION
     Dosage: UNK
     Route: 065
  3. ISOCARBOXAZIDE [Suspect]
     Active Substance: ISOCARBOXAZID
     Indication: DEPRESSION
     Dosage: UNK
     Route: 065
  4. LITHIUM. [Suspect]
     Active Substance: LITHIUM
     Indication: DEPRESSION
     Dosage: UNK
     Route: 065
  5. ARIPIPRAZOLE. [Suspect]
     Active Substance: ARIPIPRAZOLE
     Indication: DEPRESSION
     Dosage: UNK
     Route: 065
  6. LAMOTRIGINE. [Suspect]
     Active Substance: LAMOTRIGINE
     Indication: DEPRESSION
     Dosage: UNK
     Route: 065

REACTIONS (2)
  - Subarachnoid haemorrhage [Recovered/Resolved]
  - Drug ineffective [Unknown]
